FAERS Safety Report 20983615 (Version 2)
Quarter: 2022Q4

REPORT INFORMATION
  Report Type: Report from Study
  Country: US (occurrence: US)
  Receive Date: 20220620
  Receipt Date: 20221226
  Transmission Date: 20230113
  Serious: Yes (Other)
  Sender: FDA-Public Use
  Company Number: US-ABBVIE-22K-163-4440249-00

PATIENT
  Age: 44 Year
  Sex: Female

DRUGS (2)
  1. HUMIRA [Suspect]
     Active Substance: ADALIMUMAB
     Indication: Psoriatic arthropathy
     Dosage: CITRATE FREE
     Route: 058
  2. HUMIRA [Suspect]
     Active Substance: ADALIMUMAB
     Indication: Psoriasis

REACTIONS (2)
  - Surgery [Recovered/Resolved]
  - Melanocytic naevus [Unknown]

NARRATIVE: CASE EVENT DATE: 20220701
